FAERS Safety Report 9608527 (Version 1)
Quarter: 2013Q4

REPORT INFORMATION
  Report Type: Spontaneous
  Country: US (occurrence: US)
  Receive Date: 20131009
  Receipt Date: 20131009
  Transmission Date: 20140711
  Serious: Yes (Hospitalization)
  Sender: FDA-Public Use
  Company Number: US-SA-2013SA095627

PATIENT
  Age: 57 Year
  Sex: Male

DRUGS (1)
  1. MULTAQ [Suspect]
     Dosage: DOSE: MOSTLY 400 MG BID
     Route: 048

REACTIONS (1)
  - Pancreatitis acute [Unknown]
